FAERS Safety Report 6542755-6 (Version None)
Quarter: 2010Q1

REPORT INFORMATION
  Report Type: 
  Country: None (occurrence: None)
  Receive Date: 20100119
  Receipt Date: 20100118
  Transmission Date: 20100710
  Serious: Yes (Death, Other)
  Sender: FDA-Public Use
  Company Number: JP-BAXTER-2009BH018782

PATIENT
  Age: 44 Year
  Sex: Male

DRUGS (16)
  1. HOLOXAN BAXTER [Suspect]
     Indication: TESTICULAR GERM CELL CANCER
     Route: 042
  2. HOLOXAN BAXTER [Suspect]
     Indication: METASTASES TO CENTRAL NERVOUS SYSTEM
     Route: 042
  3. BLEOMYCIN GENERIC [Suspect]
     Indication: TESTICULAR GERM CELL CANCER
     Route: 065
  4. BLEOMYCIN GENERIC [Suspect]
     Indication: METASTASES TO CENTRAL NERVOUS SYSTEM
     Route: 065
  5. ETOPOSIDE [Suspect]
     Indication: TESTICULAR GERM CELL CANCER
     Route: 065
  6. ETOPOSIDE [Suspect]
     Indication: METASTASES TO CENTRAL NERVOUS SYSTEM
     Route: 065
  7. CISPLATIN [Suspect]
     Indication: TESTICULAR GERM CELL CANCER
     Route: 065
  8. CISPLATIN [Suspect]
     Indication: METASTASES TO CENTRAL NERVOUS SYSTEM
     Route: 065
  9. PACLITAXEL [Suspect]
     Indication: TESTICULAR GERM CELL CANCER
     Route: 065
  10. PACLITAXEL [Suspect]
     Indication: METASTASES TO CENTRAL NERVOUS SYSTEM
     Route: 065
  11. AQUPLA [Suspect]
     Indication: TESTICULAR GERM CELL CANCER
     Route: 065
  12. AQUPLA [Suspect]
     Indication: METASTASES TO CENTRAL NERVOUS SYSTEM
     Route: 065
  13. GEMCITABINE HCL [Suspect]
     Indication: TESTICULAR GERM CELL CANCER
     Route: 042
  14. GEMCITABINE HCL [Suspect]
     Indication: METASTASES TO CENTRAL NERVOUS SYSTEM
     Route: 042
  15. IRINOTECAN HCL [Suspect]
     Indication: SALVAGE THERAPY
     Route: 042
  16. RADIOTHERAPY [Suspect]
     Indication: METASTASES TO CENTRAL NERVOUS SYSTEM
     Route: 065

REACTIONS (2)
  - BONE MARROW FAILURE [None]
  - SEPSIS [None]
